FAERS Safety Report 10382879 (Version 4)
Quarter: 2015Q3

REPORT INFORMATION
  Report Type: Report from Study
  Country: US (occurrence: US)
  Receive Date: 20140813
  Receipt Date: 20150717
  Transmission Date: 20151125
  Serious: Yes (Hospitalization, Other)
  Sender: FDA-Public Use
  Company Number: US-SA-2014SA011100

PATIENT
  Age: 59 Year
  Sex: Female

DRUGS (2)
  1. FABRAZYME [Suspect]
     Active Substance: AGALSIDASE BETA
     Indication: FABRY^S DISEASE
     Route: 041
     Dates: start: 20150708
  2. FABRAZYME [Suspect]
     Active Substance: AGALSIDASE BETA
     Indication: FABRY^S DISEASE
     Route: 041
     Dates: start: 20030612, end: 20150610

REACTIONS (8)
  - Bronchitis [Unknown]
  - Blood pressure abnormal [Unknown]
  - Intracranial aneurysm [Recovering/Resolving]
  - Heart rate irregular [Unknown]
  - Breast cancer [Recovering/Resolving]
  - Fatigue [Unknown]
  - Depression [Not Recovered/Not Resolved]
  - Hypotension [Unknown]

NARRATIVE: CASE EVENT DATE: 2014
